FAERS Safety Report 13491108 (Version 2)
Quarter: 2017Q2

REPORT INFORMATION
  Report Type: Spontaneous
  Country: CN (occurrence: CN)
  Receive Date: 20170427
  Receipt Date: 20170512
  Transmission Date: 20170830
  Serious: Yes (Other)
  Sender: FDA-Public Use
  Company Number: CN-SA-2017SA075292

PATIENT
  Age: 48 Year
  Sex: Female
  Weight: 50 kg

DRUGS (3)
  1. AMARYL [Suspect]
     Active Substance: GLIMEPIRIDE
     Indication: DIABETES MELLITUS
     Dosage: DOSE: 1-0.5 TAB
     Route: 048
  2. AMARYL [Suspect]
     Active Substance: GLIMEPIRIDE
     Indication: DIABETES MELLITUS
     Dosage: DOSE: 1-0.5 TAB
     Route: 048
     Dates: start: 201501
  3. ACARBOSE. [Concomitant]
     Active Substance: ACARBOSE
     Indication: DIABETES MELLITUS
     Route: 048
     Dates: start: 201501

REACTIONS (6)
  - Weight decreased [Not Recovered/Not Resolved]
  - Pain in extremity [Recovering/Resolving]
  - Dizziness [Recovering/Resolving]
  - Blood pressure fluctuation [Recovered/Resolved]
  - Deep vein thrombosis [Recovering/Resolving]
  - Blood glucose increased [Not Recovered/Not Resolved]

NARRATIVE: CASE EVENT DATE: 201502
